FAERS Safety Report 4494642-5 (Version None)
Quarter: 2004Q4

REPORT INFORMATION
  Report Type: 
  Country: None (occurrence: None)
  Receive Date: 20041103
  Receipt Date: 20041025
  Transmission Date: 20050328
  Serious: Yes (Other)
  Sender: FDA-Public Use
  Company Number: 2004-10-1585

PATIENT
  Age: 64 Year
  Sex: Male

DRUGS (2)
  1. GARAMYCIN [Suspect]
     Indication: INFECTION
     Dates: start: 20030608, end: 20030612
  2. GARAMYCIN [Suspect]
     Indication: SEPSIS
     Dates: start: 20030608, end: 20030612

REACTIONS (4)
  - ANTIBIOTIC LEVEL ABOVE THERAPEUTIC [None]
  - CONDITION AGGRAVATED [None]
  - NEUROTOXICITY [None]
  - POLYNEUROPATHY [None]
